FAERS Safety Report 26139356 (Version 2)
Quarter: 2025Q4

REPORT INFORMATION
  Report Type: Spontaneous
  Country: ID (occurrence: ID)
  Receive Date: 20251210
  Receipt Date: 20251216
  Transmission Date: 20260117
  Serious: Yes (Death, Other)
  Sender: ABBVIE
  Company Number: ID-RICHTER-2025-GR-015905

PATIENT
  Age: 32 Year
  Sex: Female

DRUGS (1)
  1. CARIPRAZINE HYDROCHLORIDE [Suspect]
     Active Substance: CARIPRAZINE HYDROCHLORIDE
     Indication: Bipolar disorder
     Route: 048

REACTIONS (2)
  - Death [Fatal]
  - Inappropriate antidiuretic hormone secretion [Unknown]
